FAERS Safety Report 9357595 (Version 2)
Quarter: 2013Q3

REPORT INFORMATION
  Report Type: Spontaneous
  Country: PT (occurrence: PT)
  Receive Date: 20130620
  Receipt Date: 20130712
  Transmission Date: 20140515
  Serious: Yes (Hospitalization)
  Sender: FDA-Public Use
  Company Number: PT-ROCHE-1239438

PATIENT
  Age: 74 Year
  Sex: Female

DRUGS (8)
  1. LUCENTIS [Suspect]
     Indication: DIABETIC RETINAL OEDEMA
     Route: 050
     Dates: start: 20130228
  2. LUCENTIS [Suspect]
     Route: 050
     Dates: start: 20130509
  3. RISIDON [Concomitant]
  4. LANSOPRAZOLE [Concomitant]
  5. LIPRO [Concomitant]
  6. DIAMICRON [Concomitant]
  7. INDAPAMIDE [Concomitant]
  8. DIAZEPAM [Concomitant]

REACTIONS (1)
  - Cerebrovascular accident [Recovered/Resolved]
